FAERS Safety Report 25230595 (Version 1)
Quarter: 2025Q2

REPORT INFORMATION
  Report Type: Spontaneous
  Country: US (occurrence: US)
  Receive Date: 20250423
  Receipt Date: 20250423
  Transmission Date: 20250717
  Serious: Yes (Other)
  Sender: FRESENIUS KABI
  Company Number: US-FreseniusKabi-FK202505793

PATIENT
  Sex: Male

DRUGS (9)
  1. FLUOROURACIL [Suspect]
     Active Substance: FLUOROURACIL
     Indication: Product used for unknown indication
     Dates: start: 20230221, end: 20230524
  2. FLUOROURACIL [Suspect]
     Active Substance: FLUOROURACIL
     Dates: start: 20230905, end: 20240117
  3. AVASTIN [Suspect]
     Active Substance: BEVACIZUMAB
     Indication: Product used for unknown indication
     Dates: start: 20230221
  4. AVASTIN [Suspect]
     Active Substance: BEVACIZUMAB
     Dates: start: 20230905
  5. AVASTIN [Suspect]
     Active Substance: BEVACIZUMAB
     Dates: start: 20231025, end: 20240117
  6. LEUCOVORIN CALCIUM [Suspect]
     Active Substance: LEUCOVORIN CALCIUM
     Indication: Product used for unknown indication
     Dates: start: 20230221
  7. LEUCOVORIN CALCIUM [Suspect]
     Active Substance: LEUCOVORIN CALCIUM
     Dates: start: 20230905
  8. OXALIPLATIN [Suspect]
     Active Substance: OXALIPLATIN
     Indication: Colon cancer metastatic
     Dosage: DOSE: 130-180 MG EVERY 2 WEEKS?ROUTE OF ADMINISTRATION: IV
     Route: 042
     Dates: start: 20230221, end: 20230905
  9. OXALIPLATIN [Suspect]
     Active Substance: OXALIPLATIN
     Dates: start: 20230905

REACTIONS (2)
  - Gastrointestinal haemorrhage [Unknown]
  - Disease progression [Unknown]
